FAERS Safety Report 5895118-0 (Version None)
Quarter: 2008Q3

REPORT INFORMATION
  Report Type: 
  Country: None (occurrence: None)
  Receive Date: 20080924
  Receipt Date: 20080911
  Transmission Date: 20090109
  Serious: Yes (Other)
  Sender: FDA-Public Use
  Company Number: JP-PFIZER INC-2008076757

PATIENT
  Age: 38 Year
  Sex: Male

DRUGS (5)
  1. ZITHROMAX [Suspect]
     Indication: TONSILLITIS
     Dates: start: 20080801, end: 20080803
  2. LOXONIN [Concomitant]
     Dates: start: 20080801
  3. MUCOSTA [Concomitant]
     Dates: start: 20080801
  4. DASEN [Concomitant]
     Dates: start: 20080801
  5. TRANSAMIN [Concomitant]
     Dates: start: 20080801

REACTIONS (1)
  - RHABDOMYOLYSIS [None]
